FAERS Safety Report 4769005-5 (Version None)
Quarter: 2005Q3

REPORT INFORMATION
  Report Type: 
  Country: None (occurrence: None)
  Receive Date: 20050913
  Receipt Date: 20050831
  Transmission Date: 20060218
  Serious: Yes (Other)
  Sender: FDA-Public Use
  Company Number: 2005123316

PATIENT
  Age: 38 Year
  Sex: Male

DRUGS (3)
  1. ATORVASTATIN CALCIUM [Suspect]
     Indication: MIXED HYPERLIPIDAEMIA
     Dosage: 20 MG (20 MG, 1 IN 1D)
  2. EZETROL (EZETIMIBE) [Suspect]
     Indication: MIXED HYPERLIPIDAEMIA
     Dosage: 10 MG (10 MG, 1 IN 1 D)
  3. ALL OTHER THERAPEUTIC PRODUCTS (ALL OTHER THERAPEUTIC PRODUCTS) [Concomitant]

REACTIONS (5)
  - ASTHENIA [None]
  - BLOOD TRIGLYCERIDES INCREASED [None]
  - HEPATOCELLULAR DAMAGE [None]
  - IRON METABOLISM DISORDER [None]
  - SERUM FERRITIN INCREASED [None]
